FAERS Safety Report 9465304 (Version 2)
Quarter: 2013Q4

REPORT INFORMATION
  Report Type: Spontaneous
  Country: GB (occurrence: GB)
  Receive Date: 20130820
  Receipt Date: 20131003
  Transmission Date: 20140711
  Serious: Yes (Other)
  Sender: FDA-Public Use
  Company Number: GB-ROCHE-1261913

PATIENT
  Age: 47 Year
  Sex: Female

DRUGS (3)
  1. RIBAVIRIN [Suspect]
     Indication: HEPATITIS C
     Route: 048
     Dates: start: 201209
  2. PEGINTERFERON ALFA-2B [Suspect]
     Indication: HEPATITIS C
     Route: 058
     Dates: start: 201209
  3. INCIVO [Suspect]
     Indication: HEPATITIS C
     Route: 048
     Dates: start: 20120918

REACTIONS (6)
  - Depression [Not Recovered/Not Resolved]
  - Insomnia [Not Recovered/Not Resolved]
  - Nausea [Not Recovered/Not Resolved]
  - Rash [Not Recovered/Not Resolved]
  - Rash vesicular [Not Recovered/Not Resolved]
  - Tongue dry [Not Recovered/Not Resolved]
